FAERS Safety Report 6231787-3 (Version None)
Quarter: 2009Q2

REPORT INFORMATION
  Report Type: 
  Country: None (occurrence: None)
  Receive Date: 20090612
  Receipt Date: 20090612
  Transmission Date: 20091009
  Serious: Yes (Hospitalization)
  Sender: FDA-Public Use
  Company Number: None

PATIENT
  Age: 63 Year
  Sex: Male
  Weight: 86 kg

DRUGS (10)
  1. HALODOL 5 MG/ML [Suspect]
     Dosage: 5 MG/ML Q6H/PRN IM GIVEN TWICE
     Route: 030
  2. LEXAPRO [Concomitant]
  3. PROCRIT [Concomitant]
  4. INSULIN [Concomitant]
  5. GLUCAGON [Concomitant]
  6. ASPIRIN [Concomitant]
  7. LOVENOX [Concomitant]
  8. VIT. B12 [Concomitant]
  9. ZOCOR [Concomitant]
  10. UNASYN [Concomitant]

REACTIONS (3)
  - DYSTONIA [None]
  - MUSCLE RIGIDITY [None]
  - OPISTHOTONUS [None]
